FAERS Safety Report 12500947 (Version 2)
Quarter: 2016Q3

REPORT INFORMATION
  Report Type: Report from Study
  Country: PL (occurrence: PL)
  Receive Date: 20160627
  Receipt Date: 20160714
  Transmission Date: 20161109
  Serious: Yes (Hospitalization)
  Sender: FDA-Public Use
  Company Number: PL-BIOGEN-2016BI00254985

PATIENT
  Age: 30 Year
  Sex: Female
  Weight: 74.1 kg

DRUGS (8)
  1. IBUPROM [Concomitant]
     Active Substance: IBUPROFEN
     Indication: HEADACHE
     Dates: start: 2013
  2. VITAMIN D [Concomitant]
     Active Substance: CHOLECALCIFEROL
     Indication: SUPPLEMENTATION THERAPY
     Dates: start: 20150323
  3. BG00012 [Suspect]
     Active Substance: DIMETHYL FUMARATE
     Indication: MULTIPLE SCLEROSIS
     Route: 048
     Dates: start: 20140814, end: 20150129
  4. BG00012 [Suspect]
     Active Substance: DIMETHYL FUMARATE
     Route: 048
     Dates: start: 20150130, end: 20150205
  5. BG00012 [Suspect]
     Active Substance: DIMETHYL FUMARATE
     Route: 048
     Dates: start: 20150206
  6. UROFLOW [Concomitant]
     Indication: URINARY INCONTINENCE
     Dates: start: 20160401
  7. MELATONINA [Concomitant]
     Indication: SUPPLEMENTATION THERAPY
     Dates: start: 2012
  8. VITAMIN B6 [Concomitant]
     Active Substance: PYRIDOXINE HYDROCHLORIDE
     Indication: SUPPLEMENTATION THERAPY
     Dates: start: 2012

REACTIONS (1)
  - Hypertonic bladder [Recovered/Resolved]

NARRATIVE: CASE EVENT DATE: 20160424
